FAERS Safety Report 11020280 (Version 1)
Quarter: 2015Q2

REPORT INFORMATION
  Report Type: Spontaneous
  Country: DE (occurrence: DE)
  Receive Date: 20150413
  Receipt Date: 20150413
  Transmission Date: 20150821
  Serious: Yes (Hospitalization)
  Sender: FDA-Public Use
  Company Number: PHHY2015DE042841

PATIENT
  Age: 90 Year
  Sex: Male

DRUGS (1)
  1. DICLOFENAC SANDOZ [Suspect]
     Active Substance: DICLOFENAC SODIUM
     Indication: ACTINIC KERATOSIS
     Route: 061

REACTIONS (7)
  - Hyperkeratosis [Unknown]
  - Scab [Unknown]
  - Skin erosion [Unknown]
  - Impaired healing [Unknown]
  - Purulent discharge [Unknown]
  - Erythema [Unknown]
  - Scar [Unknown]
